FAERS Safety Report 4906285-7 (Version None)
Quarter: 2006Q1

REPORT INFORMATION
  Report Type: 
  Country: None (occurrence: None)
  Receive Date: 20060209
  Receipt Date: 20060202
  Transmission Date: 20060701
  Serious: Yes (Death, Hospitalization)
  Sender: FDA-Public Use
  Company Number: US-AVENTIS-200611032GDDC

PATIENT
  Age: 58 Year
  Sex: Male
  Weight: 72 kg

DRUGS (3)
  1. DOCETAXEL [Suspect]
     Indication: PANCREATIC CARCINOMA
     Dosage: DOSE: UNK
     Route: 042
     Dates: start: 20060118, end: 20060118
  2. IRINOTECAN HCL [Suspect]
     Indication: PANCREATIC CARCINOMA
     Dosage: DOSE: UNK
     Route: 042
     Dates: start: 20060118, end: 20060118
  3. CETUXIMAB [Suspect]
     Indication: PANCREATIC CARCINOMA
     Dosage: DOSE: UNK
     Route: 042
     Dates: start: 20060118, end: 20060118

REACTIONS (1)
  - DIARRHOEA [None]
